FAERS Safety Report 7395196-6 (Version None)
Quarter: 2011Q2

REPORT INFORMATION
  Report Type: 
  Country: None (occurrence: None)
  Receive Date: 20110405
  Receipt Date: 20110329
  Transmission Date: 20111010
  Serious: Yes (Hospitalization, Other)
  Sender: FDA-Public Use
  Company Number: JP-GENZYME-THYM-1002047

PATIENT
  Sex: Female
  Weight: 53 kg

DRUGS (24)
  1. PREDNISOLONE [Concomitant]
     Indication: RHEUMATOID ARTHRITIS
     Dosage: UNK
     Dates: end: 20100318
  2. OMEPRAZOLE [Concomitant]
     Indication: PROPHYLAXIS AGAINST GASTROINTESTINAL ULCER
     Dosage: UNK
     Dates: start: 20090904
  3. ITRACONAZOLE [Concomitant]
     Indication: ANTIFUNGAL PROPHYLAXIS
     Dosage: UNK
     Dates: start: 20091216, end: 20100318
  4. VOGLIBOSE [Concomitant]
     Indication: DIABETES MELLITUS
     Dosage: UNK
     Dates: start: 20091216, end: 20100218
  5. CIPROFLOXACIN [Concomitant]
     Indication: ANTIBIOTIC PROPHYLAXIS
     Dosage: UNK
     Dates: start: 20091216, end: 20100114
  6. AMLODIPINE BESILATE [Concomitant]
     Indication: HYPERTENSION
     Dosage: UNK
     Dates: start: 20091221, end: 20100218
  7. CARBAZOCHROME [Concomitant]
     Indication: HAEMORRHAGE PROPHYLAXIS
     Dosage: UNK
     Dates: start: 20100211, end: 20100218
  8. RED BLOOD CELLS, CONCENTRATED [Concomitant]
     Indication: APLASTIC ANAEMIA
     Dosage: UNK
     Dates: start: 20090918
  9. LENOGRASTIM [Concomitant]
     Indication: APLASTIC ANAEMIA
     Dosage: UNK
     Dates: start: 20091218, end: 20100406
  10. PLATELETS, CONCENTRATED [Concomitant]
     Indication: APLASTIC ANAEMIA
     Dosage: UNK
     Dates: start: 20090818, end: 20100323
  11. MAGNESIUM OXIDE [Concomitant]
     Indication: CONSTIPATION
     Dosage: UNK
     Dates: start: 20091211, end: 20100128
  12. ALFACALCIDOL [Concomitant]
     Indication: OSTEOPOROSIS
     Dosage: UNK
     Dates: start: 20090805, end: 20100218
  13. ITRACONAZOLE [Concomitant]
     Dosage: UNK
     Dates: start: 20100412
  14. FUROSEMIDE [Concomitant]
     Indication: PRODUCT USED FOR UNKNOWN INDICATION
     Dosage: UNK
  15. MENATETRENONE [Concomitant]
     Indication: OSTEOPOROSIS
     Dosage: UNK
     Dates: start: 20091102, end: 20100218
  16. TRANEXAMIC ACID [Concomitant]
     Indication: PULMONARY ALVEOLAR HAEMORRHAGE
     Dosage: UNK
     Dates: start: 20091003, end: 20100218
  17. INSULIN HUMAN [Concomitant]
     Indication: DIABETES MELLITUS
     Dosage: UNK
     Dates: start: 20091219, end: 20100102
  18. CYCLOSPORINE [Concomitant]
     Indication: APLASTIC ANAEMIA
     Dosage: UNK
     Dates: start: 20090904
  19. CARBAZOCHROME SODIUM SULFONATE [Concomitant]
     Indication: HAEMORRHAGE SUBCUTANEOUS
     Dosage: UNK
     Dates: start: 20090831, end: 20100218
  20. LEVOFLOXACIN [Concomitant]
     Indication: ANTIBIOTIC PROPHYLAXIS
     Dosage: UNK
     Dates: start: 20100226, end: 20100506
  21. ALENDRONATE SODIUM [Concomitant]
     Indication: OSTEOPOROSIS
     Dosage: UNK
     Dates: start: 20100401
  22. THYMOGLOBULIN [Suspect]
     Indication: APLASTIC ANAEMIA
     Dosage: 125 MG/DAY, QD
     Route: 042
     Dates: start: 20091217, end: 20091221
  23. GLIMEPIRIDE [Concomitant]
     Indication: DIABETES MELLITUS
     Dosage: UNK
     Dates: start: 20091130, end: 20100107
  24. VALSARTAN [Concomitant]
     Indication: HYPERTENSION
     Dosage: UNK
     Dates: start: 20091204, end: 20100218

REACTIONS (25)
  - ABDOMINAL DISTENSION [None]
  - SEPSIS [None]
  - PHOTOPHOBIA [None]
  - LYMPHOCYTE COUNT DECREASED [None]
  - MALAISE [None]
  - ADRENAL INSUFFICIENCY [None]
  - LIVER DISORDER [None]
  - C-REACTIVE PROTEIN INCREASED [None]
  - ORAL HERPES [None]
  - BRONCHOPULMONARY ASPERGILLOSIS [None]
  - RENAL IMPAIRMENT [None]
  - BLOOD UREA INCREASED [None]
  - NAUSEA [None]
  - DIARRHOEA [None]
  - HYPOKALAEMIA [None]
  - DEAFNESS [None]
  - DRUG INTERACTION [None]
  - VOMITING [None]
  - DEPRESSION [None]
  - BACK PAIN [None]
  - OEDEMA [None]
  - URINARY TRACT INFECTION [None]
  - PYREXIA [None]
  - CYTOMEGALOVIRUS INFECTION [None]
  - ABDOMINAL PAIN [None]
